FAERS Safety Report 23322874 (Version 2)
Quarter: 2023Q4

REPORT INFORMATION
  Report Type: Report from Study
  Country: US (occurrence: US)
  Receive Date: 20231220
  Receipt Date: 20231221
  Transmission Date: 20240110
  Serious: Yes (Other)
  Sender: FDA-Public Use
  Company Number: US-ABBVIE-5547487

PATIENT
  Age: 74 Year
  Sex: Male

DRUGS (1)
  1. SKYRIZI [Suspect]
     Active Substance: RISANKIZUMAB-RZAA
     Indication: Psoriasis
     Route: 058
     Dates: start: 20220923

REACTIONS (4)
  - Hip fracture [Recovering/Resolving]
  - Respiratory syncytial virus infection [Recovering/Resolving]
  - Fall [Unknown]
  - Feeling cold [Unknown]

NARRATIVE: CASE EVENT DATE: 20231208
